FAERS Safety Report 19163964 (Version 2)
Quarter: 2021Q2

REPORT INFORMATION
  Report Type: Report from Study
  Country: US (occurrence: US)
  Receive Date: 20210421
  Receipt Date: 20210624
  Transmission Date: 20210717
  Serious: Yes (Hospitalization, Other)
  Sender: FDA-Public Use
  Company Number: US-TAKEDA-US201931768

PATIENT
  Age: 60 Year
  Sex: Male

DRUGS (8)
  1. TEDUGLUTIDE [Suspect]
     Active Substance: TEDUGLUTIDE
     Indication: MALABSORPTION
     Dosage: 2.175 MILLIGRAM, QD
     Route: 058
     Dates: start: 201811
  2. TEDUGLUTIDE [Suspect]
     Active Substance: TEDUGLUTIDE
     Dosage: 4.32 MILLIGRAM, QD
     Route: 058
     Dates: start: 20200326
  3. TEDUGLUTIDE [Suspect]
     Active Substance: TEDUGLUTIDE
     Dosage: 4.32 MILLIGRAM, QD
     Route: 058
     Dates: start: 20200326
  4. TEDUGLUTIDE [Suspect]
     Active Substance: TEDUGLUTIDE
     Indication: MALABSORPTION
     Dosage: 2.175 MILLIGRAM, QD
     Route: 058
     Dates: start: 201811
  5. TEDUGLUTIDE [Suspect]
     Active Substance: TEDUGLUTIDE
     Indication: MALABSORPTION
     Dosage: 2.175 MILLIGRAM, QD
     Route: 058
     Dates: start: 201811
  6. TEDUGLUTIDE [Suspect]
     Active Substance: TEDUGLUTIDE
     Indication: MALABSORPTION
     Dosage: 2.175 MILLIGRAM, QD
     Route: 058
     Dates: start: 201811
  7. TEDUGLUTIDE [Suspect]
     Active Substance: TEDUGLUTIDE
     Dosage: 4.32 MILLIGRAM, QD
     Route: 058
     Dates: start: 20200326
  8. TEDUGLUTIDE [Suspect]
     Active Substance: TEDUGLUTIDE
     Dosage: 4.32 MILLIGRAM, QD
     Route: 058
     Dates: start: 20200326

REACTIONS (5)
  - Haematoma [Unknown]
  - Infection [Unknown]
  - Product dose omission issue [Unknown]
  - Vascular device infection [Unknown]
  - Hospitalisation [Unknown]

NARRATIVE: CASE EVENT DATE: 201908
